FAERS Safety Report 12134682 (Version 3)
Quarter: 2016Q2

REPORT INFORMATION
  Report Type: Spontaneous
  Country: AU (occurrence: AU)
  Receive Date: 20160301
  Receipt Date: 20160418
  Transmission Date: 20160815
  Serious: Yes (Other)
  Sender: FDA-Public Use
  Company Number: AU-PFIZER INC-2016108053

PATIENT
  Age: 47 Year
  Sex: Male

DRUGS (10)
  1. LYRICA [Suspect]
     Active Substance: PREGABALIN
     Dosage: 150 MG, 2X/DAY
     Dates: end: 201405
  2. TEMAZE [Concomitant]
     Active Substance: TEMAZEPAM
     Dosage: 10 MG, AT NIGHT AS NEEDED
  3. GABAPENTIN. [Concomitant]
     Active Substance: GABAPENTIN
     Indication: PAIN MANAGEMENT
     Dosage: 600 MG, 3X/DAY (1 MIDDAY, 1 6PM, 1 10PM)
     Route: 048
  4. GABAPENTIN. [Concomitant]
     Active Substance: GABAPENTIN
     Dosage: 800 MG, 1X/DAY (1 MORNING)
     Route: 048
     Dates: end: 201401
  5. LORAZEPAM. [Concomitant]
     Active Substance: LORAZEPAM
     Dosage: 1 MG, AS NEEDED
     Route: 048
  6. PROCTOSEDYL [Concomitant]
     Active Substance: DIBUCAINE HYDROCHLORIDE\HYDROCORTISONE
     Dosage: APPLY 3X DAY AS NEEDED
     Route: 061
  7. PROCTOSEDYL [Concomitant]
     Active Substance: DIBUCAINE HYDROCHLORIDE\HYDROCORTISONE
     Dosage: X1, AS NEEDED
     Route: 054
  8. DILAUDID [Concomitant]
     Active Substance: HYDROMORPHONE HYDROCHLORIDE
     Dosage: 2 MG, 4X A DAY AS NEEDED
     Route: 048
  9. KAPANOL CSR [Concomitant]
     Indication: PAIN
     Dosage: 10 MG, 3X/DAY
     Route: 048
  10. LYRICA [Suspect]
     Active Substance: PREGABALIN
     Indication: PAIN
     Dosage: 75 MG, 2X/DAY
     Dates: start: 201401

REACTIONS (5)
  - Homicidal ideation [Not Recovered/Not Resolved]
  - Drug hypersensitivity [Unknown]
  - Aggression [Not Recovered/Not Resolved]
  - Mental disorder [Recovered/Resolved]
  - Sleep terror [Not Recovered/Not Resolved]

NARRATIVE: CASE EVENT DATE: 201401
